FAERS Safety Report 9593304 (Version 1)
Quarter: 2013Q3

REPORT INFORMATION
  Report Type: Spontaneous
  Country: US (occurrence: None)
  Receive Date: 20130930
  Receipt Date: 20130930
  Transmission Date: 20140515
  Serious: No
  Sender: FDA-Public Use
  Company Number: 1000045772

PATIENT
  Sex: Female

DRUGS (2)
  1. LINZESS [Suspect]
     Indication: CONSTIPATION
     Route: 048
     Dates: start: 20130412, end: 20130604
  2. LINZESS [Suspect]
     Indication: CONSTIPATION
     Dosage: 290 UG (145 UG,2 IN 1 D)
     Route: 048
     Dates: start: 20130605, end: 20130605

REACTIONS (2)
  - Diarrhoea [None]
  - Off label use [None]
